FAERS Safety Report 8234521-0 (Version None)
Quarter: 2012Q1

REPORT INFORMATION
  Report Type: 
  Country: None (occurrence: None)
  Receive Date: 20120326
  Receipt Date: 20120315
  Transmission Date: 20120608
  Serious: Yes (Hospitalization, Other)
  Sender: FDA-Public Use
  Company Number: DZ-ROCHE-778915

PATIENT
  Sex: Female

DRUGS (4)
  1. AVASTIN [Suspect]
     Indication: BREAST CANCER
     Dosage: FREQUENCY REPORTED AS PER CURE
     Route: 042
     Dates: start: 20110302, end: 20110323
  2. AVASTIN [Suspect]
     Route: 065
  3. AVASTIN [Suspect]
  4. NAVELBINE [Suspect]
     Indication: BREAST CANCER
     Route: 042
     Dates: start: 20110901

REACTIONS (5)
  - PORTAL HYPERTENSION [None]
  - DEHYDRATION [None]
  - GENERAL PHYSICAL CONDITION ABNORMAL [None]
  - WEIGHT DECREASED [None]
  - DEEP VEIN THROMBOSIS [None]
